FAERS Safety Report 23427151 (Version 3)
Quarter: 2024Q1

REPORT INFORMATION
  Report Type: Spontaneous
  Country: US (occurrence: US)
  Receive Date: 20240122
  Receipt Date: 20240315
  Transmission Date: 20240410
  Serious: No
  Sender: FDA-Public Use
  Company Number: US-PFIZER INC-PV202300205832

PATIENT
  Age: 12 Year
  Sex: Male

DRUGS (2)
  1. GENOTROPIN [Suspect]
     Active Substance: SOMATROPIN
     Indication: Growth hormone deficiency
     Dosage: 1.4MG ALTERNATING WITH 1.6MG
  2. GENOTROPIN [Suspect]
     Active Substance: SOMATROPIN
     Dosage: 1.4MG ALTERNATING WITH 1.6MG

REACTIONS (3)
  - Incorrect dose administered [Unknown]
  - Expired device used [Unknown]
  - Device breakage [Unknown]

NARRATIVE: CASE EVENT DATE: 20231201
